FAERS Safety Report 11317378 (Version 1)
Quarter: 2015Q3

REPORT INFORMATION
  Report Type: Spontaneous
  Country: US (occurrence: None)
  Receive Date: 20150727
  Receipt Date: 20150727
  Transmission Date: 20151125
  Serious: Yes (Other)
  Sender: FDA-Public Use
  Company Number: None

PATIENT
  Age: 25 Year
  Sex: Female
  Weight: 83.92 kg

DRUGS (10)
  1. FISH OIL [Concomitant]
     Active Substance: FISH OIL
  2. LAMICTAL [Suspect]
     Active Substance: LAMOTRIGINE
     Indication: DEPRESSION
     Dosage: 3 PILLS A DAY, TWICE DAILY, TAKEN BY MOUTH
     Route: 048
     Dates: start: 20130301, end: 20150726
  3. SYNTHROID [Concomitant]
     Active Substance: LEVOTHYROXINE SODIUM
  4. NEURONTIN [Concomitant]
     Active Substance: GABAPENTIN
  5. LAMICTAL [Concomitant]
     Active Substance: LAMOTRIGINE
  6. FLONASE [Concomitant]
     Active Substance: FLUTICASONE PROPIONATE
  7. VITAMIN D [Concomitant]
     Active Substance: CHOLECALCIFEROL
  8. LAMICTAL [Suspect]
     Active Substance: LAMOTRIGINE
     Indication: MOOD SWINGS
     Dosage: 3 PILLS A DAY, TWICE DAILY, TAKEN BY MOUTH
     Route: 048
     Dates: start: 20130301, end: 20150726
  9. CLARITIN [Concomitant]
     Active Substance: LORATADINE
  10. MULTIVITAMIN [Concomitant]
     Active Substance: VITAMINS

REACTIONS (12)
  - Dizziness [None]
  - Crying [None]
  - Rash [None]
  - Feeling of despair [None]
  - Psychotic disorder [None]
  - Oropharyngeal pain [None]
  - Drug withdrawal syndrome [None]
  - Nausea [None]
  - Feeling abnormal [None]
  - Memory impairment [None]
  - Screaming [None]
  - Cognitive disorder [None]
